FAERS Safety Report 13791298 (Version 1)
Quarter: 2017Q3

REPORT INFORMATION
  Report Type: Spontaneous
  Country: TH (occurrence: TH)
  Receive Date: 20170725
  Receipt Date: 20170725
  Transmission Date: 20171127
  Serious: Yes (Other)
  Sender: FDA-Public Use
  Company Number: PHHY2017TH106896

PATIENT
  Age: 63 Year
  Sex: Female

DRUGS (11)
  1. LEVODOPA BENSERAZIDE [Concomitant]
     Active Substance: BENSERAZIDE\LEVODOPA
     Dosage: 1/2 TAB AT 6,10,14,18
     Route: 048
     Dates: start: 20150429
  2. CLONAZEPAM. [Concomitant]
     Active Substance: CLONAZEPAM
     Indication: PRODUCT USED FOR UNKNOWN INDICATION
     Dosage: 1 DF, UNK
     Route: 048
     Dates: start: 201205
  3. LEVODOPA BENSERAZIDE [Concomitant]
     Active Substance: BENSERAZIDE\LEVODOPA
     Dosage: 1/2 TAB AT 7.30,11.30, 15.30, 17.30
     Route: 048
     Dates: start: 201405
  4. PRAMIPEXOLE. [Concomitant]
     Active Substance: PRAMIPEXOLE
     Dosage: 2 DF, UNK
     Route: 048
     Dates: start: 201205
  5. COMTAN [Suspect]
     Active Substance: ENTACAPONE
     Indication: PRODUCT USED FOR UNKNOWN INDICATION
     Dosage: 0.5 DF, UNK (1/2 TAB AT 6,10,14, 18.00)
     Route: 048
     Dates: start: 20150429
  6. COMTAN [Suspect]
     Active Substance: ENTACAPONE
     Dosage: 1 DF,AT 6,10,14, 18.00
     Route: 048
     Dates: start: 201505
  7. MADOPAR [Concomitant]
     Active Substance: BENSERAZIDE HYDROCHLORIDE\LEVODOPA
     Indication: PRODUCT USED FOR UNKNOWN INDICATION
     Dosage: 1*HS
     Route: 065
     Dates: start: 201505
  8. LEVODOPA BENSERAZIDE [Concomitant]
     Active Substance: BENSERAZIDE\LEVODOPA
     Indication: PRODUCT USED FOR UNKNOWN INDICATION
     Dosage: 1*3 TAB
     Route: 048
     Dates: start: 2008
  9. PRAMIPEXOLE. [Concomitant]
     Active Substance: PRAMIPEXOLE
     Indication: PRODUCT USED FOR UNKNOWN INDICATION
     Dosage: 1 DF, UNK
     Route: 048
     Dates: start: 201001
  10. TRIHEXYPHENIDYL [Concomitant]
     Active Substance: TRIHEXYPHENIDYL
     Indication: PRODUCT USED FOR UNKNOWN INDICATION
     Dosage: 1/2*2 PC
     Route: 048
     Dates: start: 20150429, end: 201705
  11. PRAMIPEXOLE. [Concomitant]
     Active Substance: PRAMIPEXOLE
     Dosage: 3 DF, UNK
     Route: 048

REACTIONS (6)
  - Muscle rigidity [Unknown]
  - Akinesia [Unknown]
  - Hallucination, visual [Recovering/Resolving]
  - Nightmare [Unknown]
  - Bradykinesia [Unknown]
  - Tremor [Not Recovered/Not Resolved]

NARRATIVE: CASE EVENT DATE: 201505
